FAERS Safety Report 25796807 (Version 1)
Quarter: 2025Q3

REPORT INFORMATION
  Report Type: Spontaneous
  Country: US (occurrence: US)
  Receive Date: 20250912
  Receipt Date: 20250912
  Transmission Date: 20251020
  Serious: No
  Sender: LYNE LABORATORIES
  Company Number: US-Lyne Laboratories Inc.-2184400

PATIENT
  Sex: Female

DRUGS (2)
  1. NYSTATIN [Suspect]
     Active Substance: NYSTATIN
     Indication: Product used for unknown indication
  2. A AND D DIAPER RASH AND SKIN PROTECTANT [Concomitant]
     Active Substance: LANOLIN\PETROLATUM

REACTIONS (1)
  - Drug ineffective [Unknown]
